FAERS Safety Report 6006861-7 (Version None)
Quarter: 2008Q4

REPORT INFORMATION
  Report Type: 
  Country: None (occurrence: None)
  Receive Date: 20081217
  Receipt Date: 20071108
  Transmission Date: 20090506
  Serious: No
  Sender: FDA-Public Use
  Company Number: US-ASTRAZENECA-2007UW25989

PATIENT
  Age: 38 Year
  Sex: Male
  Weight: 176 kg

DRUGS (3)
  1. CRESTOR [Suspect]
     Indication: BLOOD CHOLESTEROL INCREASED
     Route: 048
     Dates: start: 20070801, end: 20071101
  2. LEVAQUIN [Concomitant]
  3. DOXYCYCLINE [Concomitant]

REACTIONS (2)
  - INFECTION [None]
  - TESTICULAR PAIN [None]
